FAERS Safety Report 9296174 (Version 2)
Quarter: 2013Q2

REPORT INFORMATION
  Report Type: Spontaneous
  Country: NO (occurrence: NO)
  Receive Date: 20130517
  Receipt Date: 20130522
  Transmission Date: 20140414
  Serious: Yes (Death, Hospitalization, Other)
  Sender: FDA-Public Use
  Company Number: NO-ELI_LILLY_AND_COMPANY-NO201305002724

PATIENT
  Age: 59 Year
  Sex: Male

DRUGS (4)
  1. ALIMTA [Suspect]
     Indication: CARCINOID TUMOUR PULMONARY
     Dosage: 950 MG, UNKNOWN
     Route: 042
     Dates: start: 20130326
  2. BISOLVON [Concomitant]
     Dosage: UNK, UNKNOWN
     Route: 065
  3. SOLVIPECT [Concomitant]
     Dosage: UNK, UNKNOWN
     Route: 065
  4. BRONKYL [Concomitant]
     Dosage: UNK, UNKNOWN
     Route: 065

REACTIONS (7)
  - Malignant neoplasm progression [Fatal]
  - Dyspnoea [Not Recovered/Not Resolved]
  - Haemoptysis [Recovered/Resolved]
  - Pneumonia [Unknown]
  - Odynophagia [Unknown]
  - Dry throat [Unknown]
  - Cough [Unknown]
